FAERS Safety Report 22720908 (Version 2)
Quarter: 2024Q1

REPORT INFORMATION
  Report Type: Report from Study
  Country: US (occurrence: US)
  Receive Date: 20230719
  Receipt Date: 20240120
  Transmission Date: 20240410
  Serious: Yes (Other)
  Sender: FDA-Public Use
  Company Number: US-ABBVIE-5330831

PATIENT
  Sex: Female

DRUGS (2)
  1. RINVOQ [Suspect]
     Active Substance: UPADACITINIB
     Indication: Rheumatoid arthritis
     Dosage: LAST ADMIN DATE APR 2022
     Route: 048
     Dates: start: 20220416
  2. RINVOQ [Suspect]
     Active Substance: UPADACITINIB
     Indication: Rheumatoid arthritis
     Route: 048
     Dates: start: 20220420

REACTIONS (7)
  - Condition aggravated [Not Recovered/Not Resolved]
  - Blood cholesterol increased [Recovering/Resolving]
  - Hypertension [Not Recovered/Not Resolved]
  - Respiratory syncytial virus infection [Recovering/Resolving]
  - Insomnia [Unknown]
  - Feeding disorder [Unknown]
  - Speech disorder [Unknown]
